FAERS Safety Report 19311929 (Version 1)
Quarter: 2021Q2

REPORT INFORMATION
  Report Type: Other
  Country: JP (occurrence: JP)
  Receive Date: 20210527
  Receipt Date: 20210527
  Transmission Date: 20210717
  Serious: Yes (Other)
  Sender: FDA-Public Use
  Company Number: JP-ROCHE-2833221

PATIENT

DRUGS (3)
  1. CAPECITABINE. [Suspect]
     Active Substance: CAPECITABINE
     Indication: COLORECTAL CANCER RECURRENT
     Route: 048
  2. OXALIPLATIN. [Suspect]
     Active Substance: OXALIPLATIN
     Indication: COLORECTAL CANCER RECURRENT
     Route: 065
  3. BEVACIZUMAB. [Suspect]
     Active Substance: BEVACIZUMAB
     Indication: COLORECTAL CANCER RECURRENT
     Route: 065

REACTIONS (7)
  - Leukopenia [Recovered/Resolved]
  - Palmar-plantar erythrodysaesthesia syndrome [Recovered/Resolved]
  - Hypertension [Recovered/Resolved]
  - Diarrhoea [Recovered/Resolved]
  - Peripheral sensory neuropathy [Recovered/Resolved]
  - Tumour perforation [Unknown]
  - Nausea [Recovered/Resolved]
